FAERS Safety Report 6680048-7 (Version None)
Quarter: 2010Q2

REPORT INFORMATION
  Report Type: 
  Country: None (occurrence: None)
  Receive Date: 20100413
  Receipt Date: 20100330
  Transmission Date: 20101027
  Serious: Yes (Hospitalization)
  Sender: FDA-Public Use
  Company Number: FR-AMGEN-US403594

PATIENT
  Sex: Female

DRUGS (3)
  1. ENBREL [Suspect]
     Indication: RHEUMATOID ARTHRITIS
     Route: 058
     Dates: start: 20100125, end: 20100204
  2. CELEBREX [Suspect]
     Indication: RHEUMATOID ARTHRITIS
     Dosage: ON DEMAND FROM AN UNKNOWN DATE TO FEB-2010, AND THEN 200 MG 1 TIME PER DAY FROM 09-FEB-2010
     Route: 048
     Dates: end: 20100201
  3. CELEBREX [Suspect]
     Route: 048
     Dates: start: 20100209

REACTIONS (8)
  - ARTHRALGIA [None]
  - ASTHENIA [None]
  - BACK PAIN [None]
  - HYPERAESTHESIA [None]
  - OROPHARYNGEAL DISCOMFORT [None]
  - RASH PRURITIC [None]
  - URTICARIA [None]
  - VISUAL IMPAIRMENT [None]
